FAERS Safety Report 8596743-9 (Version None)
Quarter: 2012Q3

REPORT INFORMATION
  Report Type: 
  Country: None (occurrence: None)
  Receive Date: 20120815
  Receipt Date: 20120810
  Transmission Date: 20120928
  Serious: Yes (Other)
  Sender: FDA-Public Use
  Company Number: FI-PFIZER INC-2012127674

PATIENT
  Age: 85 Year
  Sex: Female

DRUGS (1)
  1. TOLTERODINE TARTRATE [Suspect]
     Indication: INCONTINENCE
     Dosage: 4 MG, UNK

REACTIONS (5)
  - DIZZINESS [None]
  - DYSPHAGIA [None]
  - BALANCE DISORDER [None]
  - JOINT SWELLING [None]
  - DRY MOUTH [None]
